FAERS Safety Report 21730811 (Version 2)
Quarter: 2022Q4

REPORT INFORMATION
  Report Type: Report from Study
  Country: IE (occurrence: IE)
  Receive Date: 20221215
  Receipt Date: 20221222
  Transmission Date: 20230112
  Serious: No
  Sender: FDA-Public Use
  Company Number: IE-JNJFOC-20221201363

PATIENT
  Age: 58 Year
  Sex: Male

DRUGS (4)
  1. STELARA [Suspect]
     Active Substance: USTEKINUMAB
     Indication: Psoriatic arthropathy
     Dosage: STRENGTH: 90.00 MG/ML
     Route: 058
     Dates: start: 20221130
  2. STELARA [Suspect]
     Active Substance: USTEKINUMAB
  3. PERINDOPRIL [Concomitant]
     Active Substance: PERINDOPRIL
     Route: 050
  4. LECALPIN [Concomitant]
     Route: 050

REACTIONS (2)
  - Device deployment issue [Unknown]
  - Off label use [Unknown]

NARRATIVE: CASE EVENT DATE: 20221130
